FAERS Safety Report 5396187-7 (Version None)
Quarter: 2007Q3

REPORT INFORMATION
  Report Type: 
  Country: None (occurrence: None)
  Receive Date: 20070725
  Receipt Date: 20070723
  Transmission Date: 20080115
  Serious: Yes (Other)
  Sender: FDA-Public Use
  Company Number: PHNU2007DE00823

PATIENT
  Age: 70 Year
  Sex: Male

DRUGS (2)
  1. ZOMETA [Suspect]
     Indication: METASTASES TO BONE
     Dosage: 4 MG, QMO
     Route: 042
     Dates: start: 20050301, end: 20070101
  2. TRENANTONE [Concomitant]
     Dosage: 11 MG, Q3MO
     Route: 058

REACTIONS (4)
  - ABSCESS JAW [None]
  - DENTAL OPERATION [None]
  - OSTEONECROSIS [None]
  - VENOUS THROMBOSIS [None]
